FAERS Safety Report 23794597 (Version 3)
Quarter: 2024Q2

REPORT INFORMATION
  Report Type: Report from Study
  Country: US (occurrence: US)
  Receive Date: 20240429
  Receipt Date: 20240529
  Transmission Date: 20240716
  Serious: Yes (Other)
  Sender: FDA-Public Use
  Company Number: US-Eisai-EC-2024-164591

PATIENT
  Age: 70 Year
  Sex: Female

DRUGS (5)
  1. LENVIMA [Suspect]
     Active Substance: LENVATINIB
     Indication: Endometrial cancer
     Route: 048
     Dates: start: 20240222, end: 20240312
  2. LENVIMA [Suspect]
     Active Substance: LENVATINIB
     Indication: Retroperitoneal cancer
     Route: 048
     Dates: start: 202403, end: 202404
  3. LENVIMA [Suspect]
     Active Substance: LENVATINIB
     Indication: Malignant peritoneal neoplasm
  4. KEYTRUDA [Suspect]
     Active Substance: PEMBROLIZUMAB
     Indication: Endometrial cancer
     Dosage: DOSAGE AND FREQUENCY UNKNOWN
     Route: 042
     Dates: end: 202404
  5. PREDNISONE [Concomitant]
     Active Substance: PREDNISONE

REACTIONS (4)
  - Autoimmune hepatitis [Not Recovered/Not Resolved]
  - Abdominal discomfort [Unknown]
  - Gastrooesophageal reflux disease [Unknown]
  - Autoimmune dermatitis [Unknown]

NARRATIVE: CASE EVENT DATE: 20240401
